FAERS Safety Report 15615387 (Version 1)
Quarter: 2018Q4

REPORT INFORMATION
  Report Type: Report from Study
  Country: AU (occurrence: AU)
  Receive Date: 20181114
  Receipt Date: 20181114
  Transmission Date: 20190205
  Serious: Yes (Hospitalization)
  Sender: FDA-Public Use
  Company Number: AU-IPSEN BIOPHARMACEUTICALS, INC.-2018-03135

PATIENT
  Age: 80 Year
  Sex: Female

DRUGS (2)
  1. SOMATULINE AUTOGEL 90MG [Suspect]
     Active Substance: LANREOTIDE ACETATE
     Indication: NEUROENDOCRINE TUMOUR
     Dosage: 90 MG
     Route: 058
     Dates: start: 20170122
  2. FRUSEMIDE [Concomitant]
     Active Substance: FUROSEMIDE

REACTIONS (10)
  - Oedema peripheral [Recovering/Resolving]
  - Nausea [Recovering/Resolving]
  - Joint injury [Recovering/Resolving]
  - Mobility decreased [Recovering/Resolving]
  - Cellulitis [Recovering/Resolving]
  - Fall [Recovering/Resolving]
  - Vertigo [Not Recovered/Not Resolved]
  - Urinary tract infection [Recovering/Resolving]
  - Lethargy [Recovering/Resolving]
  - Sepsis [Recovering/Resolving]

NARRATIVE: CASE EVENT DATE: 201802
